FAERS Safety Report 18445409 (Version 1)
Quarter: 2020Q4

REPORT INFORMATION
  Report Type: Spontaneous
  Country: IN (occurrence: IN)
  Receive Date: 20201030
  Receipt Date: 20201030
  Transmission Date: 20210114
  Serious: Yes (Other)
  Sender: FDA-Public Use
  Company Number: IN-VISTAPHARM, INC.-VER202010-001869

PATIENT
  Age: 16 Year
  Sex: Female
  Weight: 72.8 kg

DRUGS (1)
  1. VALPROIC ACID. [Suspect]
     Active Substance: VALPROIC ACID
     Indication: JUVENILE MYOCLONIC EPILEPSY
     Dosage: 1,000 MG

REACTIONS (6)
  - Blood luteinising hormone increased [Recovered/Resolved]
  - Menstruation irregular [Recovered/Resolved]
  - Ovarian cyst [Unknown]
  - Hypothyroidism [Recovered/Resolved]
  - Weight increased [Recovered/Resolved]
  - Postural tremor [Recovered/Resolved]
